FAERS Safety Report 8056610-6 (Version None)
Quarter: 2012Q1

REPORT INFORMATION
  Report Type: 
  Country: None (occurrence: None)
  Receive Date: 20120119
  Receipt Date: 20120109
  Transmission Date: 20120608
  Serious: Yes (Other)
  Sender: FDA-Public Use
  Company Number: CHPA2012US001434

PATIENT
  Age: 38 Year
  Sex: Female

DRUGS (3)
  1. MICARDIS [Concomitant]
     Dosage: 20 MG, QD
  2. LEVOXYL [Concomitant]
     Dosage: ONCE A DAY
  3. EXCEDRIN (MIGRAINE) [Suspect]
     Dosage: UNK, UNK
     Route: 048
     Dates: start: 20111229, end: 20111229

REACTIONS (4)
  - COLD SWEAT [None]
  - PALPITATIONS [None]
  - HEART RATE INCREASED [None]
  - DYSPNOEA [None]
